FAERS Safety Report 8177583-1 (Version None)
Quarter: 2012Q1

REPORT INFORMATION
  Report Type: 
  Country: None (occurrence: None)
  Receive Date: 20120301
  Receipt Date: 20120217
  Transmission Date: 20120608
  Serious: Yes (Other)
  Sender: FDA-Public Use
  Company Number: PHHY2009JP39460

PATIENT
  Sex: Male

DRUGS (4)
  1. TASIGNA [Suspect]
     Dosage: 800 MG, UNK
     Route: 048
     Dates: start: 20091125, end: 20111017
  2. TASIGNA [Suspect]
     Indication: CHRONIC MYELOID LEUKAEMIA
     Dosage: 800 MG, UNK
     Route: 048
     Dates: start: 20090903, end: 20090905
  3. TASIGNA [Suspect]
     Dosage: 400 MG, UNK
     Route: 048
     Dates: start: 20090909, end: 20091124
  4. AMLODIPINE [Concomitant]
     Indication: HYPERTENSION
     Dosage: 2.5 MG, UNK
     Route: 048

REACTIONS (6)
  - ANAEMIA [None]
  - BLOOD BILIRUBIN INCREASED [None]
  - NEOPLASM PROGRESSION [None]
  - ELECTROCARDIOGRAM QT PROLONGED [None]
  - PYREXIA [None]
  - BLOOD GLUCOSE INCREASED [None]
